FAERS Safety Report 7071869-X (Version None)
Quarter: 2010Q4

REPORT INFORMATION
  Report Type: 
  Country: None (occurrence: None)
  Receive Date: 20101029
  Receipt Date: 20091028
  Transmission Date: 20110411
  Serious: No
  Sender: FDA-Public Use
  Company Number: A0813820A

PATIENT
  Age: 74 Year
  Sex: Female

DRUGS (6)
  1. ADVAIR DISKUS 100/50 [Suspect]
     Indication: PULMONARY FIBROSIS
     Dosage: 1PUFF TWICE PER DAY
     Route: 055
     Dates: start: 20090930
  2. IBUPROFEN [Concomitant]
  3. NAPROSYN [Concomitant]
  4. ALENDRONATE SODIUM [Concomitant]
  5. MULTI-VITAMIN [Concomitant]
  6. LOVAZA [Concomitant]

REACTIONS (3)
  - PAIN [None]
  - PAIN IN JAW [None]
  - SWELLING [None]
